FAERS Safety Report 20845574 (Version 1)
Quarter: 2022Q2

REPORT INFORMATION
  Report Type: Other
  Country: DK (occurrence: DK)
  Receive Date: 20220518
  Receipt Date: 20220518
  Transmission Date: 20220721
  Serious: Yes (Death, Hospitalization, Other)
  Sender: FDA-Public Use
  Company Number: None

PATIENT
  Age: 81 Year
  Sex: Male
  Weight: 96 kg

DRUGS (9)
  1. OMNIPAQUE [Suspect]
     Active Substance: IOHEXOL
     Indication: Scan with contrast
     Dosage: UNK UNK, SINGLE
     Route: 065
     Dates: start: 20220429, end: 20220429
  2. OMNIPAQUE [Suspect]
     Active Substance: IOHEXOL
     Indication: Product used for unknown indication
  3. FLUDEOXYGLUCOSE F-18 [Suspect]
     Active Substance: FLUDEOXYGLUCOSE F-18
     Indication: Positron emission tomogram
     Dosage: UNK UNK, SINGLE
     Route: 065
     Dates: start: 20220429, end: 20220429
  4. FLUDEOXYGLUCOSE F-18 [Suspect]
     Active Substance: FLUDEOXYGLUCOSE F-18
     Indication: Lung cancer metastatic
  5. FLUDEOXYGLUCOSE F-18 [Suspect]
     Active Substance: FLUDEOXYGLUCOSE F-18
     Indication: Metastases to bone
  6. FLUDEOXYGLUCOSE F-18 [Suspect]
     Active Substance: FLUDEOXYGLUCOSE F-18
     Indication: Metastases to liver
  7. FLUDEOXYGLUCOSE F-18 [Suspect]
     Active Substance: FLUDEOXYGLUCOSE F-18
     Indication: Hydronephrosis
  8. MORPHINE [Concomitant]
     Active Substance: MORPHINE
  9. DIAZEPAM [Concomitant]
     Active Substance: DIAZEPAM
     Dosage: UNK

REACTIONS (6)
  - Organ failure [Fatal]
  - Pulmonary congestion [Fatal]
  - Malaise [Fatal]
  - Acute kidney injury [Fatal]
  - Pulmonary oedema [Fatal]
  - Anuria [Fatal]

NARRATIVE: CASE EVENT DATE: 20220501
